FAERS Safety Report 23058321 (Version 3)
Quarter: 2024Q1

REPORT INFORMATION
  Report Type: Report from Study
  Country: US (occurrence: US)
  Receive Date: 20231012
  Receipt Date: 20240315
  Transmission Date: 20240409
  Serious: No
  Sender: FDA-Public Use
  Company Number: US-002147023-NVSC2023US220071

PATIENT
  Sex: Female

DRUGS (1)
  1. COSENTYX [Suspect]
     Active Substance: SECUKINUMAB
     Indication: Product used for unknown indication
     Dosage: UNK, QD 5 INJECTIONS EVERY WEEK
     Route: 065
     Dates: start: 20231003

REACTIONS (2)
  - Nasopharyngitis [Unknown]
  - Psoriasis [Unknown]
